FAERS Safety Report 6718381-2 (Version None)
Quarter: 2010Q2

REPORT INFORMATION
  Report Type: 
  Country: None (occurrence: None)
  Receive Date: 20100510
  Receipt Date: 20100426
  Transmission Date: 20101027
  Serious: Yes (Other)
  Sender: FDA-Public Use
  Company Number: GB-MYLANLABS-2010S1007116

PATIENT
  Age: 4 Year
  Sex: Male

DRUGS (1)
  1. VALPROIC ACID [Suspect]
     Indication: EPILEPSY
     Dates: start: 20090801

REACTIONS (1)
  - BLOOD ALKALINE PHOSPHATASE INCREASED [None]
